FAERS Safety Report 23626177 (Version 1)
Quarter: 2024Q1

REPORT INFORMATION
  Report Type: Spontaneous
  Country: GB (occurrence: GB)
  Receive Date: 20240313
  Receipt Date: 20240313
  Transmission Date: 20240410
  Serious: Yes (Other)
  Sender: FDA-Public Use
  Company Number: GB-B.Braun Medical Inc.-2154292

PATIENT
  Age: 34 Year
  Sex: Female

DRUGS (4)
  1. LIDOCAINE HYDROCHLORIDE [Suspect]
     Active Substance: LIDOCAINE HYDROCHLORIDE
     Dates: start: 20240223
  2. HYDROCORTISONE [Concomitant]
     Active Substance: HYDROCORTISONE
  3. ACETAMINOPHEN [Concomitant]
     Active Substance: ACETAMINOPHEN
  4. Noriday (norethisterone) [Concomitant]

REACTIONS (8)
  - Maternal exposure during breast feeding [Unknown]
  - Off label use [Unknown]
  - Chest discomfort [Unknown]
  - Erythema [Unknown]
  - Peripheral swelling [Unknown]
  - Nasal congestion [Unknown]
  - Sneezing [Unknown]
  - Pruritus [Unknown]
